FAERS Safety Report 9778877 (Version 2)
Quarter: 2014Q1

REPORT INFORMATION
  Report Type: Spontaneous
  Country: IT (occurrence: IT)
  Receive Date: 20131223
  Receipt Date: 20140122
  Transmission Date: 20141002
  Serious: Yes (Hospitalization)
  Sender: FDA-Public Use
  Company Number: IT-TEVA-452471ISR

PATIENT
  Age: 74 Year
  Sex: Male
  Weight: 70 kg

DRUGS (8)
  1. FLUOROURACILE TEVA [Suspect]
     Indication: GASTRIC CANCER
     Dosage: 2490 MILLIGRAM DAILY;
     Route: 042
     Dates: start: 20130827, end: 20130917
  2. CISPLATINO HOSPIRA [Suspect]
     Indication: GASTRIC CANCER
     Dosage: 90.71 MILLIGRAM DAILY;
     Route: 042
     Dates: start: 20130827, end: 20130917
  3. FARMORUBICINA [Suspect]
     Indication: GASTRIC CANCER
     Dosage: 75.59 MILLIGRAM DAILY; POWDER FOR SOLUTION FOR INFUSION
     Route: 040
     Dates: start: 20130827, end: 20130917
  4. PANTOPRAZOLO SODICO [Concomitant]
     Indication: GASTROOESOPHAGEAL REFLUX PROPHYLAXIS
     Dosage: 40 MILLIGRAM DAILY;
     Route: 048
     Dates: start: 20130810, end: 20131211
  5. TATIONIL [Concomitant]
     Indication: PREMEDICATION
     Dosage: 3175 MILLIGRAM DAILY; POWDER AND SOLVENT FOR SOLUTION FOR INJECTION
     Route: 042
     Dates: start: 20130827, end: 20130917
  6. ALOXI 250 MCG [Concomitant]
     Indication: PROPHYLAXIS OF NAUSEA AND VOMITING
     Dosage: 250 MICROGRAM DAILY;
     Route: 040
     Dates: start: 20130827, end: 20130917
  7. DESAMETASONE FOSFATO HOSPIRA [Concomitant]
     Indication: PROPHYLAXIS OF NAUSEA AND VOMITING
     Dosage: 20 MILLIGRAM DAILY;
     Route: 042
     Dates: start: 20130827, end: 20130917
  8. ZARZIO 30 MU [Concomitant]
     Indication: PROPHYLAXIS
     Dosage: 1 DOSAGE FORMS DAILY;
     Route: 058
     Dates: start: 20130910, end: 20130913

REACTIONS (8)
  - Sepsis [Recovered/Resolved]
  - Diverticulitis [Recovered/Resolved]
  - Nausea [Recovered/Resolved]
  - Vomiting [Recovered/Resolved]
  - Diarrhoea [Recovered/Resolved]
  - Stomatitis [Recovered/Resolved]
  - Neutropenia [Recovered/Resolved]
  - Hyperpyrexia [Recovered/Resolved]
